FAERS Safety Report 12998370 (Version 1)
Quarter: 2016Q4

REPORT INFORMATION
  Report Type: Spontaneous
  Country: US (occurrence: US)
  Receive Date: 20161205
  Receipt Date: 20161205
  Transmission Date: 20170207
  Serious: No
  Sender: FDA-Public Use
  Company Number: US-IROKO PHARMACEUTICALS LLC-US-I09001-14-00149

PATIENT
  Sex: Male
  Weight: 165.16 kg

DRUGS (3)
  1. INDOCIN [Suspect]
     Active Substance: INDOMETHACIN
     Indication: GOUT
     Route: 048
  2. ULORIC [Concomitant]
     Active Substance: FEBUXOSTAT
     Indication: HYPERURICAEMIA
     Route: 048
     Dates: start: 20140501
  3. ULORIC [Concomitant]
     Active Substance: FEBUXOSTAT
     Indication: GOUT

REACTIONS (1)
  - Gout [Not Recovered/Not Resolved]
